FAERS Safety Report 6231843-X (Version None)
Quarter: 2009Q2

REPORT INFORMATION
  Report Type: 
  Country: None (occurrence: None)
  Receive Date: 20090616
  Receipt Date: 20080912
  Transmission Date: 20091009
  Serious: No
  Sender: FDA-Public Use
  Company Number: US-BAYER-200813730BCC

PATIENT
  Age: 69 Year
  Sex: Female

DRUGS (1)
  1. FINACEA [Suspect]
     Indication: DRUG USE FOR UNKNOWN INDICATION
     Dosage: SAMPLE BOX
     Route: 061
     Dates: start: 20080101

REACTIONS (2)
  - ASTHMA [None]
  - WHEEZING [None]
